FAERS Safety Report 6235983-0 (Version None)
Quarter: 2009Q2

REPORT INFORMATION
  Report Type: 
  Country: None (occurrence: None)
  Receive Date: 20090617
  Receipt Date: 20090617
  Transmission Date: 20091009
  Serious: Yes (Other)
  Sender: FDA-Public Use
  Company Number: None

PATIENT
  Age: 25 Year
  Sex: Male
  Weight: 80.7403 kg

DRUGS (3)
  1. ZICAM NASAL GEL NONE ZICAM [Suspect]
     Indication: NASAL CONGESTION
     Dosage: 2 SPRAYS IN EACH NOSTRIL EVERY 8 HOURS NASAL
     Route: 045
     Dates: start: 20000101, end: 20040105
  2. ZICAM NASAL GEL NONE ZICAM [Suspect]
     Indication: NASAL CONGESTION
     Dosage: 2 SPRAYS IN EACH NOSTRIL EVERY 8 HOURS NASAL
     Route: 045
     Dates: start: 20010301, end: 20070301
  3. . [Concomitant]

REACTIONS (6)
  - ANOSMIA [None]
  - BURNING SENSATION [None]
  - CONDITION AGGRAVATED [None]
  - EATING DISORDER [None]
  - NASAL CONGESTION [None]
  - PARAESTHESIA [None]
